FAERS Safety Report 20848083 (Version 2)
Quarter: 2022Q2

REPORT INFORMATION
  Report Type: Spontaneous
  Country: BR (occurrence: BR)
  Receive Date: 20220519
  Receipt Date: 20220628
  Transmission Date: 20220720
  Serious: Yes (Hospitalization, Other)
  Sender: FDA-Public Use
  Company Number: BR-BoehringerIngelheim-2022-BI-170367

PATIENT
  Age: 56 Year
  Sex: Female
  Weight: 41 kg

DRUGS (5)
  1. OFEV [Suspect]
     Active Substance: NINTEDANIB
     Indication: Idiopathic pulmonary fibrosis
     Route: 048
     Dates: start: 2021, end: 202201
  2. Alenia [Concomitant]
     Indication: Prophylaxis
     Dosage: 2 TABLETS IN THE PUMP FOR INHALATION
     Route: 055
  3. ALBUTEROL [Concomitant]
     Active Substance: ALBUTEROL
     Indication: Cough
     Dates: start: 20220510
  4. KOIDE D [Concomitant]
     Indication: Drug therapy
     Dates: start: 202201
  5. OXYGEN [Concomitant]
     Active Substance: OXYGEN
     Indication: Drug therapy

REACTIONS (5)
  - Asthenia [Not Recovered/Not Resolved]
  - Oxygen saturation decreased [Not Recovered/Not Resolved]
  - Idiopathic pulmonary fibrosis [Not Recovered/Not Resolved]
  - Pneumonia [Recovered/Resolved]
  - Fatigue [Unknown]

NARRATIVE: CASE EVENT DATE: 20220101
